FAERS Safety Report 17564767 (Version 1)
Quarter: 2020Q1

REPORT INFORMATION
  Report Type: Report from Study
  Country: US (occurrence: US)
  Receive Date: 20200320
  Receipt Date: 20200320
  Transmission Date: 20200409
  Serious: Yes (Hospitalization, Other)
  Sender: FDA-Public Use
  Company Number: PHHY2019US073976

PATIENT
  Age: 19 Year
  Sex: Female
  Weight: 59.1 kg

DRUGS (41)
  1. LAMPRENE [Suspect]
     Active Substance: CLOFAZIMINE
     Indication: MYCOBACTERIUM ABSCESSUS INFECTION
     Dosage: 100 MG, QD
     Route: 048
     Dates: start: 20190124, end: 20190513
  2. LAMPRENE [Suspect]
     Active Substance: CLOFAZIMINE
     Dosage: 100 MG, QD
     Route: 048
     Dates: start: 20190901
  3. CLONIDINE. [Concomitant]
     Active Substance: CLONIDINE
     Indication: DEPRESSION
     Dosage: 1 DF, QD
     Route: 048
  4. MUPIROCIN. [Concomitant]
     Active Substance: MUPIROCIN
     Indication: NASAL IRRIGATION
     Dosage: 5 MG, BID (FOR 2 MONTHS)
     Route: 065
  5. NEXPLANON [Concomitant]
     Active Substance: ETONOGESTREL
     Indication: PRODUCT USED FOR UNKNOWN INDICATION
     Dosage: 1 DF, QD
     Route: 058
  6. ONE-A-DAY MEN^S [Concomitant]
     Indication: PRODUCT USED FOR UNKNOWN INDICATION
     Dosage: 1 DF, QD
     Route: 048
  7. PROBIOTIC [Concomitant]
     Active Substance: PROBIOTICS NOS
     Indication: PRODUCT USED FOR UNKNOWN INDICATION
     Dosage: 1 DF, BID
     Route: 048
  8. CARDIZEM [Concomitant]
     Active Substance: DILTIAZEM HYDROCHLORIDE
     Indication: DEPRESSION
     Dosage: UNK
     Route: 065
  9. MORPHINE [Concomitant]
     Active Substance: MORPHINE
     Indication: PAIN
     Dosage: UNK
     Route: 065
  10. FLUVOXAMINE [Concomitant]
     Active Substance: FLUVOXAMINE
     Indication: ANXIETY
  11. HYDROXYZINE HYDROCHLORIDE. [Concomitant]
     Active Substance: HYDROXYZINE HYDROCHLORIDE
     Indication: PRODUCT USED FOR UNKNOWN INDICATION
     Dosage: 10 MG, PRN (4 TIMES A DAY)
     Route: 048
  12. BUDESONIDE. [Concomitant]
     Active Substance: BUDESONIDE
     Indication: NASAL IRRIGATION
     Dosage: 0.5 MG, BID
     Route: 065
  13. PRAZOSIN. [Concomitant]
     Active Substance: PRAZOSIN
     Dosage: 4 MG, QD (QPM)
     Route: 048
  14. SODIUM CHLORIDE. [Concomitant]
     Active Substance: SODIUM CHLORIDE
     Dosage: 0.7 %, BID (0.28GM= 4ML)
     Route: 055
     Dates: start: 2018
  15. AMIKACIN. [Concomitant]
     Active Substance: AMIKACIN
     Indication: MYCOBACTERIUM ABSCESSUS INFECTION
     Dosage: 500 MG, Q24H
     Route: 055
     Dates: start: 20190110, end: 20190416
  16. CHOLECALCIFEROL [Concomitant]
     Active Substance: CHOLECALCIFEROL
     Indication: PRODUCT USED FOR UNKNOWN INDICATION
     Dosage: 1 DF, QD (EVERY MONDAY)
     Route: 048
  17. FLONASE [Concomitant]
     Active Substance: FLUTICASONE PROPIONATE
     Indication: PRODUCT USED FOR UNKNOWN INDICATION
     Dosage: 1 DF, BID
     Route: 055
  18. FLUVOXAMINE [Concomitant]
     Active Substance: FLUVOXAMINE
     Indication: DEPRESSION
     Dosage: 75 MG, UNK
     Route: 065
  19. MIRTAZAPINE. [Concomitant]
     Active Substance: MIRTAZAPINE
     Indication: DEPRESSION
     Dosage: 2 DF, QHS
     Route: 048
  20. MIRTAZAPINE. [Concomitant]
     Active Substance: MIRTAZAPINE
     Indication: ANXIETY
  21. SODIUM CHLORIDE. [Concomitant]
     Active Substance: SODIUM CHLORIDE
     Dosage: 0.9 %, UNK (100ML)
     Route: 041
     Dates: start: 20190416
  22. HYPERTONIC SALINE SOLUTION [Concomitant]
     Active Substance: SODIUM CHLORIDE
     Indication: CYSTIC FIBROSIS LUNG
     Dosage: UNK
     Route: 055
  23. LAMPRENE [Suspect]
     Active Substance: CLOFAZIMINE
     Dosage: 100 MG, QD
     Route: 048
     Dates: start: 20200314
  24. ALBUTEROL. [Concomitant]
     Active Substance: ALBUTEROL
     Indication: PRODUCT USED FOR UNKNOWN INDICATION
     Dosage: UNK UNK, BID
     Route: 055
  25. CARTIA XT [Concomitant]
     Active Substance: DILTIAZEM HYDROCHLORIDE
     Indication: PRODUCT USED FOR UNKNOWN INDICATION
     Dosage: 120 MG, QD
     Route: 048
  26. DEPO TESTOSTERONE [Concomitant]
     Active Substance: TESTOSTERONE
     Indication: TRANS-SEXUALISM
     Dosage: 0.5 ML, QW
     Route: 030
  27. PULMOZYME [Concomitant]
     Active Substance: DORNASE ALFA
     Indication: CYSTIC FIBROSIS LUNG
     Dosage: UNK UNK, QD
     Route: 055
     Dates: start: 20180909, end: 20190416
  28. SODIUM CHLORIDE. [Concomitant]
     Active Substance: SODIUM CHLORIDE
     Indication: CYSTIC FIBROSIS LUNG
     Dosage: (0.27G=3ML) (ADD 2-3ML TO AMIKACIN FOR INHALATION)
     Route: 055
  29. VENTOLIN HFA [Concomitant]
     Active Substance: ALBUTEROL SULFATE
     Indication: PRODUCT USED FOR UNKNOWN INDICATION
     Dosage: 1 DF (PUFF), QD (PRN)
     Route: 055
  30. CLARITHROMYCIN. [Concomitant]
     Active Substance: CLARITHROMYCIN
     Indication: MYCOBACTERIUM ABSCESSUS INFECTION
     Dosage: 1 DF, Q12H
     Route: 048
     Dates: start: 20181025, end: 20190418
  31. PROMETHAZINE [Concomitant]
     Active Substance: PROMETHAZINE HYDROCHLORIDE
     Indication: PRODUCT USED FOR UNKNOWN INDICATION
     Dosage: 1 DF, Q8H (PRN)
     Route: 048
  32. ZOFRAN [Concomitant]
     Active Substance: ONDANSETRON HYDROCHLORIDE
     Indication: PRODUCT USED FOR UNKNOWN INDICATION
     Dosage: 8 MG, Q8H (PRN)
     Route: 048
  33. WELLBUTRIN [Concomitant]
     Active Substance: BUPROPION HYDROCHLORIDE
     Indication: DEPRESSION
  34. LAMPRENE [Suspect]
     Active Substance: CLOFAZIMINE
     Dosage: 100 MG, QD
     Route: 048
     Dates: start: 20190715
  35. BUPROPION. [Concomitant]
     Active Substance: BUPROPION
     Indication: PRODUCT USED FOR UNKNOWN INDICATION
     Dosage: 3 DF, UNK (QAM)
     Route: 048
  36. CLONIDINE. [Concomitant]
     Active Substance: CLONIDINE
     Indication: ANXIETY
  37. PRAZOSIN. [Concomitant]
     Active Substance: PRAZOSIN
     Indication: NIGHTMARE
     Dosage: 1 MG, UNK
     Route: 048
  38. PROAIR HFA [Concomitant]
     Active Substance: ALBUTEROL SULFATE
     Indication: RESPIRATORY DISORDER
     Dosage: UNK UNK, Q4H (USE 2-4 PUFFS EVERY 4 HOURS ) (AS NEEDED, USED WITH SPACE CHAMBER)
     Route: 055
  39. SODIUM CHLORIDE. [Concomitant]
     Active Substance: SODIUM CHLORIDE
     Dosage: 4 ML, BID
     Route: 055
     Dates: start: 20190416
  40. CARDIZEM [Concomitant]
     Active Substance: DILTIAZEM HYDROCHLORIDE
     Indication: ANXIETY
  41. WELLBUTRIN [Concomitant]
     Active Substance: BUPROPION HYDROCHLORIDE
     Indication: ANXIETY
     Dosage: UNK
     Route: 065

REACTIONS (41)
  - Productive cough [Not Recovered/Not Resolved]
  - Pulmonary mass [Unknown]
  - Mean cell haemoglobin decreased [Unknown]
  - Platelet count increased [Unknown]
  - Specific gravity urine increased [Unknown]
  - White blood cell count increased [Unknown]
  - Arthralgia [Recovering/Resolving]
  - Blood alkaline phosphatase increased [Unknown]
  - Infective pulmonary exacerbation of cystic fibrosis [Not Recovered/Not Resolved]
  - Malaise [Unknown]
  - Leukocytosis [Unknown]
  - Blood lactic acid increased [Unknown]
  - Glomerular filtration rate increased [Unknown]
  - Groin pain [Unknown]
  - Dizziness [Unknown]
  - Back pain [Unknown]
  - Atypical pneumonia [Not Recovered/Not Resolved]
  - Nausea [Unknown]
  - Bronchiectasis [Unknown]
  - Pancreatitis acute [Unknown]
  - Abdominal pain upper [Unknown]
  - Myalgia [Recovering/Resolving]
  - Blood chloride increased [Unknown]
  - Blood glucose decreased [Unknown]
  - Red cell distribution width increased [Unknown]
  - Eosinophil count increased [Unknown]
  - Rash papular [Unknown]
  - Pyrexia [Recovering/Resolving]
  - Cough [Recovering/Resolving]
  - Aspartate aminotransferase increased [Unknown]
  - Red blood cell count increased [Unknown]
  - Hypophagia [Unknown]
  - Haemoptysis [Recovered/Resolved]
  - Chest pain [Recovering/Resolving]
  - Dyspnoea [Not Recovered/Not Resolved]
  - Fatigue [Unknown]
  - Mean cell volume decreased [Unknown]
  - Neutrophil count increased [Unknown]
  - Bronchial secretion retention [Unknown]
  - Paranasal sinus discomfort [Unknown]
  - Ear pain [Unknown]

NARRATIVE: CASE EVENT DATE: 20190325
